FAERS Safety Report 15075824 (Version 1)
Quarter: 2018Q2

REPORT INFORMATION
  Report Type: Spontaneous
  Country: FR (occurrence: FR)
  Receive Date: 20180627
  Receipt Date: 20180627
  Transmission Date: 20180711
  Serious: Yes (Other)
  Sender: FDA-Public Use
  Company Number: FR-JNJFOC-20180622115

PATIENT
  Age: 53 Year
  Sex: Female

DRUGS (1)
  1. HALDOL DECANOAS [Suspect]
     Active Substance: HALOPERIDOL DECANOATE
     Indication: SCHIZOPHRENIA
     Route: 065

REACTIONS (4)
  - Inappropriate schedule of drug administration [Unknown]
  - Overdose [Unknown]
  - Suicidal ideation [Unknown]
  - Sleep disorder [Unknown]
